FAERS Safety Report 13882520 (Version 1)
Quarter: 2017Q3

REPORT INFORMATION
  Report Type: Spontaneous
  Country: SK (occurrence: SK)
  Receive Date: 20170818
  Receipt Date: 20170818
  Transmission Date: 20171127
  Serious: Yes (Hospitalization, Other)
  Sender: FDA-Public Use
  Company Number: SK-SHIRE-SK201717517

PATIENT

DRUGS (3)
  1. KIOVIG [Suspect]
     Active Substance: HUMAN IMMUNOGLOBULIN G
     Indication: OFF LABEL USE
  2. KIOVIG [Suspect]
     Active Substance: HUMAN IMMUNOGLOBULIN G
     Indication: LEUKAEMIA
     Dosage: 100 MG/ML
     Route: 042
     Dates: start: 201702
  3. SUPRAX [Suspect]
     Active Substance: CEFIXIME
     Indication: CYSTITIS
     Dosage: 400 MG, 2X/DAY:BID
     Route: 048

REACTIONS (2)
  - Dermatitis exfoliative [Recovered/Resolved]
  - Off label use [Unknown]

NARRATIVE: CASE EVENT DATE: 201702
